FAERS Safety Report 4562869-X (Version None)
Quarter: 2005Q1

REPORT INFORMATION
  Report Type: 
  Country: None (occurrence: None)
  Receive Date: 20050121
  Receipt Date: 20050104
  Transmission Date: 20050727
  Serious: Yes (Hospitalization)
  Sender: FDA-Public Use
  Company Number: DE_050114993

PATIENT
  Age: 59 Year

DRUGS (1)
  1. EVISTA [Suspect]
     Indication: OSTEOPOROSIS
     Dosage: 60 MG/1 DAY
     Dates: end: 20040101

REACTIONS (6)
  - ARRHYTHMIA [None]
  - FORMICATION [None]
  - HYPERTENSIVE CRISIS [None]
  - NAUSEA [None]
  - PARAESTHESIA [None]
  - VISUAL DISTURBANCE [None]
